FAERS Safety Report 16226704 (Version 1)
Quarter: 2019Q2

REPORT INFORMATION
  Report Type: Spontaneous
  Country: AT (occurrence: AT)
  Receive Date: 20190423
  Receipt Date: 20190423
  Transmission Date: 20190711
  Serious: Yes (Other)
  Sender: FDA-Public Use
  Company Number: AT-CELLTRION INC.-2019AT020573

PATIENT

DRUGS (7)
  1. CLADRIBINE. [Suspect]
     Active Substance: CLADRIBINE
     Indication: HAIRY CELL LEUKAEMIA
     Dosage: 0.14 MG/KG, 1 DAY (5 DAYS, 1 CYCLE)
     Route: 065
     Dates: start: 199310
  2. CLADRIBINE. [Suspect]
     Active Substance: CLADRIBINE
     Dosage: 0.14 MG/KG, 1 DAY (5 DAYS, 1 CYCLE)
     Route: 065
     Dates: start: 199508
  3. VEMURAFENIB. [Suspect]
     Active Substance: VEMURAFENIB
     Indication: HAIRY CELL LEUKAEMIA
     Dosage: 480 MG, 1 DAY
     Route: 065
     Dates: start: 201403, end: 201411
  4. RITUXIMAB (UNKNOWN) [Suspect]
     Active Substance: RITUXIMAB
     Dosage: 375 MG/M2, 1 WEEK (4 DOSES)
     Route: 042
     Dates: start: 201310
  5. CLADRIBINE. [Suspect]
     Active Substance: CLADRIBINE
     Dosage: 0.14 MG/KG, 1 DAY (5 DAYS, 1 CYCLE)
     Route: 065
     Dates: start: 200310
  6. RITUXIMAB (UNKNOWN) [Suspect]
     Active Substance: RITUXIMAB
     Indication: HAIRY CELL LEUKAEMIA
     Dosage: 375 MG/M2, 1 WEEK (4 DOSES)
     Route: 042
     Dates: start: 201106
  7. CLADRIBINE. [Suspect]
     Active Substance: CLADRIBINE
     Dosage: 0.14 MG/KG, 1 DAY (5 DAYS, 1 CYCLE)
     Route: 065
     Dates: start: 201103

REACTIONS (5)
  - Neutropenia [Recovered/Resolved]
  - Pneumonia [Recovered/Resolved]
  - Off label use [Unknown]
  - Thrombocytopenia [Recovered/Resolved]
  - Intentional product use issue [Unknown]
